FAERS Safety Report 6804928-4 (Version None)
Quarter: 2010Q2

REPORT INFORMATION
  Report Type: 
  Country: None (occurrence: None)
  Receive Date: 20100628
  Receipt Date: 20070718
  Transmission Date: 20101027
  Serious: No
  Sender: FDA-Public Use
  Company Number: US-PFIZER INC-2007059081

PATIENT
  Sex: Female
  Weight: 50.8 kg

DRUGS (1)
  1. XALATAN [Suspect]
     Indication: INTRAOCULAR PRESSURE INCREASED
     Dates: start: 20070704

REACTIONS (2)
  - EYELASH DISCOLOURATION [None]
  - GROWTH OF EYELASHES [None]
